FAERS Safety Report 5190761-9 (Version None)
Quarter: 2006Q4

REPORT INFORMATION
  Report Type: 
  Country: None (occurrence: None)
  Receive Date: 20061215
  Receipt Date: 20061205
  Transmission Date: 20070319
  Serious: Yes (Hospitalization)
  Sender: FDA-Public Use
  Company Number: E2090-00132-SPO-JP

PATIENT
  Age: 5 Year
  Sex: Female

DRUGS (2)
  1. ZONISAMIDE [Suspect]
     Indication: ENCEPHALOPATHY
     Dosage: 40 MG, 1 IN 1 D, ORAL
     Route: 048
  2. ZONISAMIDE [Suspect]
     Indication: EPILEPSY
     Dosage: 40 MG, 1 IN 1 D, ORAL
     Route: 048

REACTIONS (2)
  - CALCULUS URETERIC [None]
  - HAEMATURIA [None]
